FAERS Safety Report 19280843 (Version 4)
Quarter: 2022Q2

REPORT INFORMATION
  Report Type: Spontaneous
  Country: DE (occurrence: DE)
  Receive Date: 20210521
  Receipt Date: 20220609
  Transmission Date: 20220720
  Serious: Yes (Other)
  Sender: FDA-Public Use
  Company Number: DE-002147023-PHHY2019DE160052

PATIENT
  Sex: Female
  Weight: 65 kg

DRUGS (8)
  1. LETROZOLE [Suspect]
     Active Substance: LETROZOLE
     Indication: Breast cancer
     Dosage: 2.5 MILLIGRAM, ONCE A DAY
     Route: 048
     Dates: start: 20190201
  2. LETROZOLE [Suspect]
     Active Substance: LETROZOLE
     Indication: Breast cancer metastatic
     Dosage: 2.4 MILLIGRAM, ONCE A DAY (2.5 MG, QD)
     Route: 048
     Dates: start: 20190204
  3. LETROZOLE [Suspect]
     Active Substance: LETROZOLE
     Dosage: 2.5 MILLIGRAM, ONCE A DAY
     Route: 048
     Dates: start: 20190204
  4. KISQALI [Suspect]
     Active Substance: RIBOCICLIB
     Indication: Breast cancer
     Dosage: 600 MILLIGRAM (600 MG (21 DAYSINTAKE,7 DAYS PAUSE)
     Route: 048
     Dates: start: 20190211, end: 20191017
  5. KISQALI [Suspect]
     Active Substance: RIBOCICLIB
     Indication: Breast cancer metastatic
     Dosage: 600 MILLIGRAM (600 MG (600 MG ADMINISTRATION SCHEME 21 DAYS INTAKE, 7 DAYS PAUSE)
     Route: 048
     Dates: start: 20191025, end: 20200224
  6. KISQALI [Suspect]
     Active Substance: RIBOCICLIB
     Dosage: 600 MILLIGRAM(600 MG (ADMINISTRATION SCHEME 21 DAYS INTAKE, 7 DAYS PAUSE) )
     Route: 048
     Dates: start: 20200304, end: 20200428
  7. KISQALI [Suspect]
     Active Substance: RIBOCICLIB
     Dosage: 600 MILLIGRAM(600 MG (ADMINISTRATION SCHEME 21 DAYS INTAKE, 7 DAYS PAUSE) )
     Route: 048
     Dates: start: 20200506, end: 20200603
  8. KISQALI [Suspect]
     Active Substance: RIBOCICLIB
     Dosage: 400 MILLIGRAM(400 MG (ADMINISTRATION SCHEME 21 DAYS INTAKE, 7 DAYS PAUSE) )
     Route: 048
     Dates: start: 20200611

REACTIONS (18)
  - Cataract [Not Recovered/Not Resolved]
  - Chills [Recovered/Resolved]
  - Disturbance in attention [Not Recovered/Not Resolved]
  - Dizziness [Recovered/Resolved]
  - Dry eye [Not Recovered/Not Resolved]
  - Dry skin [Not Recovered/Not Resolved]
  - Fatigue [Recovered/Resolved]
  - Feeling cold [Not Recovered/Not Resolved]
  - Middle insomnia [Not Recovered/Not Resolved]
  - Nausea [Recovered/Resolved]
  - Neutrophilia [Recovered/Resolved]
  - Night sweats [Recovered/Resolved]
  - Restlessness [Recovered/Resolved]
  - Arthralgia [Recovered/Resolved]
  - Rash [Recovered/Resolved]
  - Vitamin D deficiency [Not Recovered/Not Resolved]
  - Myalgia [Recovered/Resolved]
  - Headache [Recovered/Resolved]

NARRATIVE: CASE EVENT DATE: 20190208
